FAERS Safety Report 4541720-8 (Version None)
Quarter: 2004Q4

REPORT INFORMATION
  Report Type: 
  Country: None (occurrence: None)
  Receive Date: 20041227
  Receipt Date: 20041210
  Transmission Date: 20050328
  Serious: Yes (Hospitalization)
  Sender: FDA-Public Use
  Company Number: CERZ-10736

PATIENT
  Age: 81 Year
  Sex: Female
  Weight: 63.9572 kg

DRUGS (14)
  1. CEREZYME [Suspect]
     Indication: GAUCHER'S DISEASE
     Dosage: 2800 UNITS Q2WKS IV
     Route: 042
     Dates: start: 19970827
  2. AREDIA [Concomitant]
  3. ARANESP [Concomitant]
  4. CLONIDINE [Concomitant]
  5. LIPITOR [Concomitant]
  6. NORVASC [Concomitant]
  7. DIOVAN [Concomitant]
  8. LABETALOL [Concomitant]
  9. PLAVIX [Concomitant]
  10. HYDROCHLOROTHIAZIDE [Concomitant]
  11. PRILOSEC [Concomitant]
  12. TRAVATAN [Concomitant]
  13. TIMOLOL MALEATE [Concomitant]
  14. ASPIRIN [Concomitant]

REACTIONS (2)
  - FALL [None]
  - HIP FRACTURE [None]
